FAERS Safety Report 17066423 (Version 1)
Quarter: 2019Q4

REPORT INFORMATION
  Report Type: Spontaneous
  Country: US (occurrence: US)
  Receive Date: 20191122
  Receipt Date: 20191122
  Transmission Date: 20200122
  Serious: Yes (Other)
  Sender: FDA-Public Use
  Company Number: US-BIODELIVERY SCIENCES INTERNATIONAL-2019BDSI0171

PATIENT
  Sex: Male
  Weight: 81.72 kg

DRUGS (4)
  1. BUPRENORPHINE. [Suspect]
     Active Substance: BUPRENORPHINE
     Indication: PAIN
     Route: 002
     Dates: start: 201807, end: 201807
  2. BUPRENORPHINE. [Suspect]
     Active Substance: BUPRENORPHINE
     Route: 002
     Dates: start: 201807, end: 201807
  3. LISINOPRIL. [Concomitant]
     Active Substance: LISINOPRIL
     Indication: HYPERTENSION
  4. BUPRENORPHINE. [Suspect]
     Active Substance: BUPRENORPHINE
     Route: 002
     Dates: start: 201807

REACTIONS (11)
  - Breakthrough pain [Not Recovered/Not Resolved]
  - Product administration error [Unknown]
  - Therapeutic response decreased [Unknown]
  - Product physical consistency issue [Unknown]
  - Therapeutic response increased [Unknown]
  - Oral administration complication [Unknown]
  - Product adhesion issue [Unknown]
  - Drug ineffective [Unknown]
  - Product solubility abnormal [Unknown]
  - Drug withdrawal syndrome [Recovered/Resolved]
  - Wrong technique in product usage process [Recovered/Resolved]

NARRATIVE: CASE EVENT DATE: 2018
